FAERS Safety Report 8199486-9 (Version None)
Quarter: 2012Q1

REPORT INFORMATION
  Report Type: 
  Country: None (occurrence: None)
  Receive Date: 20120309
  Receipt Date: 20120223
  Transmission Date: 20120608
  Serious: Yes (Hospitalization, Other)
  Sender: FDA-Public Use
  Company Number: CHPA2012US003597

PATIENT
  Age: 57 Year
  Sex: Female

DRUGS (2)
  1. EXCEDRIN (MIGRAINE) [Suspect]
     Indication: MIGRAINE
     Dosage: 2 DF, PRN
     Route: 048
     Dates: end: 20120208
  2. TEGRETOL [Concomitant]
     Dosage: 600 MG IN THE AM, 800 MG IN THE PM
     Route: 048

REACTIONS (34)
  - FATIGUE [None]
  - FEAR [None]
  - ANXIETY [None]
  - BRADYPHRENIA [None]
  - HEAD DISCOMFORT [None]
  - BLOOD CHOLESTEROL ABNORMAL [None]
  - BALANCE DISORDER [None]
  - IMPAIRED DRIVING ABILITY [None]
  - IMPAIRED WORK ABILITY [None]
  - FALL [None]
  - LOSS OF CONSCIOUSNESS [None]
  - COMMUNICATION DISORDER [None]
  - CONFUSIONAL STATE [None]
  - FRUSTRATION [None]
  - FEELING ABNORMAL [None]
  - DISORIENTATION [None]
  - DEPRESSED MOOD [None]
  - HYPERVIGILANCE [None]
  - EMOTIONAL DISORDER [None]
  - LIBIDO DECREASED [None]
  - MENTAL IMPAIRMENT [None]
  - DISTURBANCE IN ATTENTION [None]
  - MOBILITY DECREASED [None]
  - MOOD SWINGS [None]
  - APATHY [None]
  - PSYCHIATRIC SYMPTOM [None]
  - NIGHTMARE [None]
  - CONTUSION [None]
  - BRAIN INJURY [None]
  - VOMITING [None]
  - AMNESIA [None]
  - SLEEP DISORDER [None]
  - HEADACHE [None]
  - EXAGGERATED STARTLE RESPONSE [None]
